FAERS Safety Report 4701451-8 (Version None)
Quarter: 2005Q2

REPORT INFORMATION
  Report Type: 
  Country: None (occurrence: None)
  Receive Date: 20050627
  Receipt Date: 20050616
  Transmission Date: 20051028
  Serious: Yes (Death, Life-Threatening, Hospitalization)
  Sender: FDA-Public Use
  Company Number: HQWYE513717JUN05

PATIENT
  Sex: Male

DRUGS (2)
  1. RAPAMUNE [Suspect]
     Indication: HEART TRANSPLANT
     Dosage: ORAL
     Route: 048
  2. CYCLOSPORINE [Concomitant]

REACTIONS (8)
  - FLUID RETENTION [None]
  - HEART TRANSPLANT REJECTION [None]
  - IMPLANT SITE INFECTION [None]
  - PNEUMOCYSTIS JIROVECI INFECTION [None]
  - RENAL FAILURE [None]
  - SWELLING FACE [None]
  - SWOLLEN TONGUE [None]
  - WOUND INFECTION STAPHYLOCOCCAL [None]
